FAERS Safety Report 7366599-0 (Version None)
Quarter: 2011Q1

REPORT INFORMATION
  Report Type: 
  Country: None (occurrence: None)
  Receive Date: 20110311
  Receipt Date: 20110302
  Transmission Date: 20110831
  Serious: Yes (Death, Hospitalization, Other)
  Sender: FDA-Public Use
  Company Number: TKU2011A00026

PATIENT
  Age: 76 Year
  Sex: Female

DRUGS (3)
  1. ASPRIN  (ACETYLSALICYLIC ACID) [Concomitant]
  2. METFORMIN HCL [Concomitant]
  3. ACTOS [Suspect]
     Indication: TYPE 2 DIABETES MELLITUS
     Dosage: 15 MG (15 MG,1 IN 1 D) ORAL
     Route: 048
     Dates: start: 20100901, end: 20110223

REACTIONS (4)
  - PULMONARY EMBOLISM [None]
  - EXERCISE TOLERANCE DECREASED [None]
  - DYSPNOEA [None]
  - CARDIAC FAILURE CONGESTIVE [None]
